FAERS Safety Report 14819722 (Version 1)
Quarter: 2018Q2

REPORT INFORMATION
  Report Type: Spontaneous
  Country: US (occurrence: US)
  Receive Date: 20180417
  Receipt Date: 20180417
  Transmission Date: 20180711
  Serious: Yes (Life-Threatening, Other)
  Sender: FDA-Public Use
  Company Number: None

PATIENT
  Age: 37 Year
  Sex: Female
  Weight: 87.75 kg

DRUGS (4)
  1. XANAX [Suspect]
     Active Substance: ALPRAZOLAM
  2. BUPROPION XL 150MG TAB DR [Suspect]
     Active Substance: BUPROPION HYDROCHLORIDE
     Indication: ANXIETY
     Dosage: ?          QUANTITY:2 TABLET(S);?
     Route: 048
     Dates: start: 20180329, end: 20180416
  3. PROBIOTICS [Concomitant]
     Active Substance: PROBIOTICS NOS
  4. BUPROPION XL 150MG TAB DR [Suspect]
     Active Substance: BUPROPION HYDROCHLORIDE
     Indication: DEPRESSION
     Dosage: ?          QUANTITY:2 TABLET(S);?
     Route: 048
     Dates: start: 20180329, end: 20180416

REACTIONS (7)
  - Drug ineffective [None]
  - Depression [None]
  - Hypersomnia [None]
  - Product quality issue [None]
  - Mania [None]
  - Withdrawal syndrome [None]
  - Apparent death [None]

NARRATIVE: CASE EVENT DATE: 20180416
